FAERS Safety Report 4767997-1 (Version None)
Quarter: 2005Q3

REPORT INFORMATION
  Report Type: 
  Country: None (occurrence: None)
  Receive Date: 20050912
  Receipt Date: 20050830
  Transmission Date: 20060218
  Serious: Yes (Other)
  Sender: FDA-Public Use
  Company Number: 200513547BCC

PATIENT
  Sex: Female

DRUGS (1)
  1. ASPIRIN [Suspect]
     Indication: CARDIAC OPERATION
     Dosage: ORAL
     Route: 048
     Dates: start: 19810101

REACTIONS (1)
  - CORONARY ARTERY OCCLUSION [None]
